FAERS Safety Report 10050991 (Version 1)
Quarter: 2014Q2

REPORT INFORMATION
  Report Type: Report from Study
  Country: GB (occurrence: GB)
  Receive Date: 20140401
  Receipt Date: 20140401
  Transmission Date: 20141212
  Serious: Yes (Other)
  Sender: FDA-Public Use
  Company Number: GB-GLAXOSMITHKLINE-Z0022370A

PATIENT
  Sex: Male
  Weight: 70.8 kg

DRUGS (1)
  1. DABRAFENIB [Suspect]
     Indication: NON-SMALL CELL LUNG CANCER
     Dosage: 150MG TWICE PER DAY
     Route: 048
     Dates: start: 20130701

REACTIONS (1)
  - Basal cell carcinoma [Recovered/Resolved]
